FAERS Safety Report 8489282-7 (Version None)
Quarter: 2012Q3

REPORT INFORMATION
  Report Type: 
  Country: None (occurrence: None)
  Receive Date: 20120705
  Receipt Date: 20120625
  Transmission Date: 20120928
  Serious: Yes (Other)
  Sender: FDA-Public Use
  Company Number: BR-ASTRAZENECA-2012SE43325

PATIENT
  Age: 66 Year
  Sex: Female
  Weight: 63 kg

DRUGS (5)
  1. CRESTOR [Suspect]
     Indication: BLOOD CHOLESTEROL INCREASED
     Route: 048
     Dates: start: 20100330, end: 20120625
  2. CRESTOR [Suspect]
     Route: 048
  3. BETASERC [Concomitant]
  4. DIOVAN TRIPLO [Concomitant]
  5. CLOPIDOGREL [Concomitant]

REACTIONS (2)
  - OFF LABEL USE [None]
  - CEREBROVASCULAR ACCIDENT [None]
